FAERS Safety Report 12311249 (Version 2)
Quarter: 2016Q2

REPORT INFORMATION
  Report Type: Spontaneous
  Country: US (occurrence: US)
  Receive Date: 20160427
  Receipt Date: 20160621
  Transmission Date: 20160815
  Serious: Yes (Other)
  Sender: FDA-Public Use
  Company Number: US-BAYER-2016-080512

PATIENT
  Age: 27 Year
  Sex: Female
  Weight: 89.8 kg

DRUGS (3)
  1. MIRENA [Suspect]
     Active Substance: LEVONORGESTREL
     Indication: CONTRACEPTION
     Dosage: 20 MCG/24HR, CONT
     Route: 015
     Dates: start: 2012
  2. MIRENA [Suspect]
     Active Substance: LEVONORGESTREL
     Indication: CONTRACEPTION
     Dosage: 20 MCG/24HR, CONT
     Route: 015
     Dates: start: 20140501, end: 20141028
  3. NUVARING [Concomitant]
     Active Substance: ETHINYL ESTRADIOL\ETONOGESTREL

REACTIONS (11)
  - Device dislocation [None]
  - Genital haemorrhage [None]
  - Infertility female [None]
  - Abdominal pain lower [None]
  - Discomfort [None]
  - Device dislocation [None]
  - Procedural haemorrhage [None]
  - Procedural pain [None]
  - Procedural pain [None]
  - Genital haemorrhage [None]
  - Fatigue [None]

NARRATIVE: CASE EVENT DATE: 2012
